FAERS Safety Report 5509696-4 (Version None)
Quarter: 2007Q4

REPORT INFORMATION
  Report Type: 
  Country: None (occurrence: None)
  Receive Date: 20071108
  Receipt Date: 20071031
  Transmission Date: 20080405
  Serious: Yes (Other)
  Sender: FDA-Public Use
  Company Number: US-JNJFOC-20071100421

PATIENT
  Sex: Male

DRUGS (3)
  1. LEUSTATIN [Suspect]
  2. LEUSTATIN [Suspect]
     Indication: LANGERHANS' CELL GRANULOMATOSIS
     Dosage: SINGLE COURSE OF 7 DAY IV INFUSION, DOSE APPROX. 60-62MG
  3. DDAVP (NEEDS NO REFRIGERATION) [Concomitant]
     Indication: DIABETES INSIPIDUS
     Route: 065

REACTIONS (2)
  - DRUG ADMINISTRATION ERROR [None]
  - PANCYTOPENIA [None]
